FAERS Safety Report 15863146 (Version 1)
Quarter: 2018Q4

REPORT INFORMATION
  Report Type: Spontaneous
  Country: US (occurrence: US)
  Receive Date: 20181229
  Receipt Date: 20181229
  Transmission Date: 20190205
  Serious: Yes (Hospitalization, Other)
  Sender: FDA-Public Use
  Company Number: None

PATIENT
  Age: 76 Year
  Sex: Female
  Weight: 41.7 kg

DRUGS (3)
  1. APIXABAN [Suspect]
     Active Substance: APIXABAN
  2. CARBAMAZEPINE. [Suspect]
     Active Substance: CARBAMAZEPINE
     Indication: SEIZURE
     Route: 048
     Dates: start: 20091201
  3. DABIGATRAN 150MG [Suspect]
     Active Substance: DABIGATRAN
     Indication: CEREBROVASCULAR ACCIDENT
     Route: 048
     Dates: start: 20170909

REACTIONS (2)
  - Drug interaction [None]
  - Ischaemic stroke [None]

NARRATIVE: CASE EVENT DATE: 20181020
